FAERS Safety Report 21619286 (Version 1)
Quarter: 2022Q4

REPORT INFORMATION
  Report Type: Spontaneous
  Country: ES (occurrence: ES)
  Receive Date: 20221120
  Receipt Date: 20221120
  Transmission Date: 20230112
  Serious: Yes (Death, Other)
  Sender: FDA-Public Use
  Company Number: ES-ZAMBON-202203179ESP

PATIENT
  Age: 81 Year
  Sex: Male

DRUGS (9)
  1. XADAGO [Suspect]
     Active Substance: SAFINAMIDE MESYLATE
     Indication: Parkinson^s disease
     Route: 048
     Dates: start: 20220707, end: 20220830
  2. GLICLAZIDE [Concomitant]
     Active Substance: GLICLAZIDE
     Indication: Type 2 diabetes mellitus
     Route: 048
     Dates: start: 2021
  3. OMEPRAZOLE [Concomitant]
     Active Substance: OMEPRAZOLE
     Indication: Prophylaxis
     Route: 048
     Dates: start: 2018
  4. CARBIDOPA\LEVODOPA [Concomitant]
     Active Substance: CARBIDOPA\LEVODOPA
     Indication: Parkinson^s disease
     Route: 048
     Dates: start: 202110
  5. Atorvastatin Norman [Concomitant]
     Indication: Dyslipidaemia
     Route: 048
     Dates: start: 2018
  6. FERPLEX [Concomitant]
     Indication: Iron deficiency
     Route: 048
     Dates: start: 202203
  7. TICAGRELOR [Concomitant]
     Active Substance: TICAGRELOR
     Indication: Acute myocardial infarction
     Route: 048
     Dates: start: 2018
  8. LOVASTATIN [Concomitant]
     Active Substance: LOVASTATIN
     Indication: Dyslipidaemia
     Route: 048
     Dates: start: 2013, end: 2017
  9. ASPIRIN [Concomitant]
     Active Substance: ASPIRIN
     Indication: Myocardial infarction
     Route: 048
     Dates: start: 2018, end: 2019

REACTIONS (4)
  - General physical health deterioration [Fatal]
  - Hypernatraemia [Fatal]
  - Dysphagia [Fatal]
  - Pemphigoid [Recovered/Resolved with Sequelae]

NARRATIVE: CASE EVENT DATE: 20220701
